FAERS Safety Report 13096539 (Version 1)
Quarter: 2017Q1

REPORT INFORMATION
  Report Type: Spontaneous
  Country: US (occurrence: US)
  Receive Date: 20170106
  Receipt Date: 20170106
  Transmission Date: 20170428
  Serious: No
  Sender: FDA-Public Use
  Company Number: None

PATIENT
  Sex: Female

DRUGS (1)
  1. IBRANCE [Suspect]
     Active Substance: PALBOCICLIB
     Indication: BREAST CANCER
     Dosage: 125 MG DAILY FOR 21 DAYS ON AND 7 DAYS OFF PO
     Route: 048
     Dates: start: 20150502

REACTIONS (3)
  - Impaired healing [None]
  - Hypokalaemia [None]
  - Skin infection [None]
